FAERS Safety Report 5636689-9 (Version None)
Quarter: 2008Q1

REPORT INFORMATION
  Report Type: 
  Country: None (occurrence: None)
  Receive Date: 20080225
  Receipt Date: 20080218
  Transmission Date: 20080703
  Serious: Yes (Hospitalization)
  Sender: FDA-Public Use
  Company Number: BE-ASTRAZENECA-2008AC00503

PATIENT
  Age: 58 Year
  Sex: Female

DRUGS (1)
  1. TENORETIC 100 [Suspect]
     Indication: HYPERTENSION
     Dosage: 100/25 MG
     Route: 048
     Dates: end: 20080208

REACTIONS (2)
  - ARRHYTHMIA [None]
  - HYPOKALAEMIA [None]
